FAERS Safety Report 8501001 (Version 2)
Quarter: 2012Q4

REPORT INFORMATION
  Report Type: 
  Country: SK (occurrence: SK)
  Receive Date: 20120410
  Receipt Date: 20121204
  Transmission Date: 20130627
  Serious: Yes (Other)
  Sender: FDA-Public Use
  Company Number: SK-UCBSA-054656

PATIENT
  Sex: Female

DRUGS (4)
  1. CIMZIA [Suspect]
     Indication: RHEUMATOID ARTHRITIS
     Route: 058
     Dates: start: 20110217, end: 201202
  2. MEDROL [Concomitant]
  3. EUTHYROX [Concomitant]
  4. FLECTOR [Concomitant]

REACTIONS (1)
  - Herpes zoster [Recovered/Resolved]
